FAERS Safety Report 11287624 (Version 1)
Quarter: 2015Q3

REPORT INFORMATION
  Report Type: Spontaneous
  Country: FR (occurrence: FR)
  Receive Date: 20150721
  Receipt Date: 20150721
  Transmission Date: 20151125
  Serious: Yes (Death)
  Sender: FDA-Public Use
  Company Number: FR-SA-2015SA103560

PATIENT
  Age: 72 Year
  Sex: Male

DRUGS (13)
  1. TEMESTA [Concomitant]
     Active Substance: LORAZEPAM
  2. LANTUS [Concomitant]
     Active Substance: INSULIN GLARGINE
  3. COUMADINE [Suspect]
     Active Substance: WARFARIN SODIUM
     Route: 048
     Dates: end: 20150527
  4. DEDROGYL [Concomitant]
     Active Substance: CALCIFEDIOL
  5. LOVENOX [Suspect]
     Active Substance: ENOXAPARIN SODIUM
     Route: 058
     Dates: start: 20150528
  6. LERCANIDIPINE [Concomitant]
     Active Substance: LERCANIDIPINE
  7. LOVENOX [Suspect]
     Active Substance: ENOXAPARIN SODIUM
     Route: 058
     Dates: start: 20150605, end: 20150606
  8. SELOKEN [Concomitant]
     Active Substance: METOPROLOL
  9. KALEORID [Concomitant]
     Active Substance: POTASSIUM CHLORIDE
  10. HUMALOG [Concomitant]
     Active Substance: INSULIN LISPRO
  11. CALCIPRAT [Concomitant]
  12. LASILIX [Concomitant]
     Active Substance: FUROSEMIDE
  13. TAHOR [Concomitant]
     Active Substance: ATORVASTATIN CALCIUM

REACTIONS (4)
  - Cardio-respiratory arrest [Fatal]
  - Anaemia [Fatal]
  - Melaena [Fatal]
  - Perirenal haematoma [Fatal]

NARRATIVE: CASE EVENT DATE: 201505
